FAERS Safety Report 18970731 (Version 1)
Quarter: 2021Q1

REPORT INFORMATION
  Report Type: Spontaneous
  Country: US (occurrence: US)
  Receive Date: 20210304
  Receipt Date: 20210304
  Transmission Date: 20210420
  Serious: No
  Sender: FDA-Public Use
  Company Number: US-GILEAD-2021-0519813

PATIENT
  Sex: Female

DRUGS (3)
  1. VEMLIDY [Suspect]
     Active Substance: TENOFOVIR ALAFENAMIDE FUMARATE
     Indication: CHRONIC HEPATITIS B
     Dosage: 25 MG, QD
     Route: 048
     Dates: start: 202004
  2. RAPAMUNE [Concomitant]
     Active Substance: SIROLIMUS
  3. CITALOPRAM HYDROBROMIDE. [Concomitant]
     Active Substance: CITALOPRAM HYDROBROMIDE

REACTIONS (2)
  - Unevaluable event [Unknown]
  - Medication error [Unknown]
